FAERS Safety Report 10458176 (Version 1)
Quarter: 2014Q3

REPORT INFORMATION
  Report Type: Spontaneous
  Country: US (occurrence: US)
  Receive Date: 20140917
  Receipt Date: 20140917
  Transmission Date: 20150326
  Serious: Yes (Other)
  Sender: FDA-Public Use
  Company Number: US-UNITED THERAPEUTICS-UNT-2014-007205

PATIENT
  Age: 72 Year
  Sex: Female
  Weight: 83.45 kg

DRUGS (1)
  1. TYVASO [Suspect]
     Active Substance: TREPROSTINIL
     Indication: PULMONARY ARTERIAL HYPERTENSION
     Dosage: 18 TO 72 ?G, QID
     Dates: start: 20140826

REACTIONS (3)
  - Fatigue [Unknown]
  - Asthenia [Unknown]
  - Throat tightness [Unknown]

NARRATIVE: CASE EVENT DATE: 20140904
